FAERS Safety Report 15736216 (Version 1)
Quarter: 2018Q4

REPORT INFORMATION
  Report Type: Spontaneous
  Country: DE (occurrence: DE)
  Receive Date: 20181218
  Receipt Date: 20181218
  Transmission Date: 20190205
  Serious: Yes (Hospitalization, Other)
  Sender: FDA-Public Use
  Company Number: DE-009507513-1812DEU004850

PATIENT
  Age: 32 Year
  Sex: Female
  Weight: 52 kg

DRUGS (1)
  1. IMPLANON [Suspect]
     Active Substance: ETONOGESTREL
     Dosage: 1 ROD IN THE UPPER ARM
     Route: 030
     Dates: start: 20180325, end: 20180708

REACTIONS (10)
  - Pain [Recovered/Resolved]
  - Aggression [Recovered/Resolved]
  - Gastrointestinal infection [Recovered/Resolved]
  - Haemorrhoids [Unknown]
  - Intestinal haemorrhage [Recovered/Resolved]
  - General physical condition decreased [Recovered/Resolved]
  - Abnormal faeces [Recovered/Resolved]
  - Mood swings [Recovered/Resolved]
  - Malaise [Recovered/Resolved]
  - Intestinal haemorrhage [Recovered/Resolved]

NARRATIVE: CASE EVENT DATE: 201803
